FAERS Safety Report 6120850-3 (Version None)
Quarter: 2009Q1

REPORT INFORMATION
  Report Type: 
  Country: None (occurrence: None)
  Receive Date: 20090312
  Receipt Date: 20090225
  Transmission Date: 20090719
  Serious: Yes (Hospitalization, Other)
  Sender: FDA-Public Use
  Company Number: 2009S1003468

PATIENT
  Age: 71 Year
  Sex: Female
  Weight: 81 kg

DRUGS (11)
  1. BISOPRODOL FUMARATE [Suspect]
     Indication: CORONARY ARTERY DISEASE
     Dosage: 10 MG; DAILY; ORAL;  5 MG; DAILY; ORAL
     Route: 048
     Dates: start: 20080925, end: 20081002
  2. BISOPRODOL FUMARATE [Suspect]
     Indication: CORONARY ARTERY DISEASE
     Dosage: 10 MG; DAILY; ORAL;  5 MG; DAILY; ORAL
     Route: 048
     Dates: start: 20080101, end: 20081004
  3. THEOPHYLLINE [Suspect]
     Indication: DYSPNOEA
     Dosage: 135 MG; 3 TIMES A DAY; ORAL
     Route: 048
     Dates: start: 20081002, end: 20081004
  4. ACETYLSALICYLIC ACID [Concomitant]
  5. CALCIUM [Concomitant]
  6. CLOPIDOGREL [Concomitant]
  7. FELODIPINE [Concomitant]
  8. OMEPRAZOLE [Concomitant]
  9. PROCORALAN [Concomitant]
  10. RAMIPRIL [Concomitant]
  11. SIMVASTATIN [Concomitant]

REACTIONS (1)
  - TACHYCARDIA [None]
